FAERS Safety Report 6122237-6 (Version None)
Quarter: 2009Q1

REPORT INFORMATION
  Report Type: 
  Country: None (occurrence: None)
  Receive Date: 20090318
  Receipt Date: 20090309
  Transmission Date: 20090719
  Serious: Yes (Hospitalization)
  Sender: FDA-Public Use
  Company Number: PHHY2009FR08708

PATIENT
  Age: 55 Year
  Sex: Female

DRUGS (4)
  1. TEGRETOL [Suspect]
     Indication: BIPOLAR DISORDER
     Dosage: 400 MG, TID
  2. TEGRETOL [Suspect]
     Indication: MANIA
  3. TERALITHE [Suspect]
     Indication: BIPOLAR DISORDER
     Dosage: 400 MG, TID
  4. TERALITHE [Suspect]
     Indication: MANIA

REACTIONS (2)
  - ATAXIA [None]
  - DRUG DISPENSING ERROR [None]
